FAERS Safety Report 17555935 (Version 2)
Quarter: 2020Q2

REPORT INFORMATION
  Report Type: Spontaneous
  Country: HU (occurrence: HU)
  Receive Date: 20200318
  Receipt Date: 20200408
  Transmission Date: 20200713
  Serious: Yes (Hospitalization)
  Sender: FDA-Public Use
  Company Number: HU-PFIZER INC-2020088110

PATIENT
  Age: 72 Year
  Sex: Male

DRUGS (17)
  1. SUTENT [Suspect]
     Active Substance: SUNITINIB MALATE
     Dosage: 37.5 MG, MORNING (2/1 SCHEME: TWO WEEKS OF TAKING THE MEDICATION, ONE WEEK BREAK)
     Route: 048
     Dates: start: 20180207, end: 20180612
  2. KARDEGIC [Concomitant]
     Active Substance: ASPIRIN DL-LYSINE
     Dosage: M 1 TBL
  3. SUTENT [Suspect]
     Active Substance: SUNITINIB MALATE
     Dosage: 37.5 MG, MORNING (2/1 SCHEME: TWO WEEKS OF TAKING THE MEDICATION, ONE WEEK BREAK)
     Route: 048
     Dates: start: 20181024
  4. CHINOTAL [Concomitant]
     Active Substance: PENTOXIFYLLINE
     Dosage: 2X1 TBL
  5. SUTENT [Suspect]
     Active Substance: SUNITINIB MALATE
     Dosage: 25 MG, MORNING (2/1 SCHEME: TWO WEEKS OF TAKING THE MEDICATION, ONE WEEK BREAK)
     Route: 048
     Dates: start: 20190913
  6. LIPIDIL [Concomitant]
     Active Substance: FENOFIBRATE
     Dosage: E 1 TBL
     Dates: end: 20160126
  7. DIAPREL MR [Concomitant]
     Active Substance: GLICLAZIDE
     Dosage: M 1/2 TBL
     Dates: start: 20150618
  8. COPRENESSA [Concomitant]
     Active Substance: INDAPAMIDE\PERINDOPRIL ERBUMINE
     Dosage: 4/1.25 MG E 1/2 TBL
  9. MILURIT [Concomitant]
     Active Substance: ALLOPURINOL
     Dosage: M 1 TBL
  10. JANUVIA [Concomitant]
     Active Substance: SITAGLIPTIN PHOSPHATE
     Dosage: 100 MG RM 1 TBL
     Dates: start: 20160523
  11. DALNESSA [Concomitant]
     Dosage: 4/5 MG E 1 TBL
  12. ATORVA TEVA [Concomitant]
     Dosage: E 1 TBL
  13. DIAPREL MR [Concomitant]
     Active Substance: GLICLAZIDE
     Dosage: M 2 TBL
  14. TALLITON [Concomitant]
     Active Substance: CARVEDILOL
     Dosage: M 1 TBL
  15. SUTENT [Suspect]
     Active Substance: SUNITINIB MALATE
     Indication: RENAL CANCER
     Dosage: 50 MG, MORNING (2/1 SCHEME: TWO WEEKS OF TAKING THE MEDICATION, ONE WEEK BREAK)
     Route: 048
     Dates: start: 20140805
  16. VICTOZA [Concomitant]
     Active Substance: LIRAGLUTIDE
     Dosage: 18 IU, UNK
     Route: 058
  17. HUMA-FOLACID [Concomitant]
     Dosage: 2X1 TBL
     Dates: start: 20141111

REACTIONS (15)
  - Nausea [Recovered/Resolved]
  - Dysphonia [Unknown]
  - Cutaneous symptom [Recovered/Resolved]
  - Rash [Unknown]
  - Reflux gastritis [Unknown]
  - Dyspepsia [Recovered/Resolved]
  - Palmar-plantar erythrodysaesthesia syndrome [Unknown]
  - Hyperchlorhydria [Unknown]
  - Hypertension [Recovered/Resolved]
  - Prostatomegaly [Unknown]
  - Bladder hypertrophy [Unknown]
  - Pruritus [Recovered/Resolved]
  - Diverticulum intestinal [Unknown]
  - Diarrhoea [Recovered/Resolved]
  - Gastritis [Unknown]

NARRATIVE: CASE EVENT DATE: 20140926
